FAERS Safety Report 11341548 (Version 4)
Quarter: 2016Q3

REPORT INFORMATION
  Report Type: Report from Study
  Country: ZA (occurrence: ZA)
  Receive Date: 20150805
  Receipt Date: 20160712
  Transmission Date: 20161109
  Serious: Yes (Other)
  Sender: FDA-Public Use
  Company Number: PHHY2015ZA091555

PATIENT
  Age: 70 Year
  Sex: Female

DRUGS (2)
  1. ACLASTA [Suspect]
     Active Substance: ZOLEDRONIC ACID
     Dosage: 1 DF, Q12MO
     Route: 065
     Dates: start: 2015
  2. ACLASTA [Suspect]
     Active Substance: ZOLEDRONIC ACID
     Indication: OSTEOPOROSIS
     Dosage: 1 DF, Q12MO
     Route: 065
     Dates: start: 201404

REACTIONS (6)
  - Fall [Unknown]
  - Limb injury [Not Recovered/Not Resolved]
  - Haematoma [Not Recovered/Not Resolved]
  - Facial pain [Unknown]
  - Contusion [Unknown]
  - Facial bones fracture [Unknown]

NARRATIVE: CASE EVENT DATE: 201506
